FAERS Safety Report 8105325-4 (Version None)
Quarter: 2012Q1

REPORT INFORMATION
  Report Type: 
  Country: None (occurrence: None)
  Receive Date: 20120201
  Receipt Date: 20120123
  Transmission Date: 20120608
  Serious: Yes (Hospitalization, Other)
  Sender: FDA-Public Use
  Company Number: PHEH2011US07907

PATIENT
  Sex: Male

DRUGS (1)
  1. GLEEVEC [Suspect]
     Indication: GASTRIC CANCER
     Dosage: 400 MG DAILY
     Route: 048
     Dates: start: 20110426

REACTIONS (5)
  - GASTRIC ULCER [None]
  - PNEUMONIA [None]
  - PROSTATE INFECTION [None]
  - PARAESTHESIA [None]
  - NAUSEA [None]
